FAERS Safety Report 5175453-4 (Version None)
Quarter: 2006Q4

REPORT INFORMATION
  Report Type: 
  Country: None (occurrence: None)
  Receive Date: 20061215
  Receipt Date: 20061204
  Transmission Date: 20070319
  Serious: Yes (Hospitalization)
  Sender: FDA-Public Use
  Company Number: PHBS2006IT18846

PATIENT
  Age: 32 Year
  Sex: Female

DRUGS (1)
  1. METHERGINE [Suspect]
     Indication: CAESAREAN SECTION
     Dosage: 60 DROPS/DAY
     Route: 048
     Dates: start: 20040724, end: 20040726

REACTIONS (1)
  - RASH PAPULAR [None]
